FAERS Safety Report 20070015 (Version 1)
Quarter: 2021Q4

REPORT INFORMATION
  Report Type: Spontaneous
  Country: US (occurrence: None)
  Receive Date: 20211115
  Receipt Date: 20211115
  Transmission Date: 20220303
  Serious: Yes (Disabling)
  Sender: FDA-Public Use
  Company Number: None

PATIENT
  Age: 40 Year
  Sex: Female
  Weight: 77.85 kg

DRUGS (1)
  1. ENBREL [Suspect]
     Active Substance: ETANERCEPT
     Indication: Rheumatoid arthritis
     Dosage: OTHER QUANTITY : 1 INJECTION(S);?OTHER FREQUENCY : ONCE WEEKLY;?
     Route: 058
     Dates: start: 20201203, end: 20210107

REACTIONS (6)
  - Fatigue [None]
  - Pain [None]
  - Generalised oedema [None]
  - Blood pressure increased [None]
  - Mobility decreased [None]
  - Impaired self-care [None]

NARRATIVE: CASE EVENT DATE: 20201203
